FAERS Safety Report 17030728 (Version 8)
Quarter: 2021Q4

REPORT INFORMATION
  Report Type: Spontaneous
  Country: IN (occurrence: IN)
  Receive Date: 20191114
  Receipt Date: 20211110
  Transmission Date: 20220303
  Serious: Yes (Other)
  Sender: FDA-Public Use
  Company Number: IN-PFIZER INC-2019489670

PATIENT
  Age: 35 Year
  Sex: Female

DRUGS (5)
  1. PALBOCICLIB [Suspect]
     Active Substance: PALBOCICLIB
     Indication: Breast cancer metastatic
     Dosage: 125 MG, 1X/DAY
     Route: 048
     Dates: start: 20191017
  2. PALBOCICLIB [Suspect]
     Active Substance: PALBOCICLIB
     Dosage: 100 MG, 1X/DAY
     Route: 048
     Dates: start: 20191016, end: 20210831
  3. LETROZOLE [Concomitant]
     Active Substance: LETROZOLE
     Dosage: 2.5 MG, 1X/DAY
     Dates: start: 20191005
  4. CALCIMAX FORTE [Concomitant]
     Dosage: 1 G, 1X/DAY
  5. ZOLEDRONIC ACID [Concomitant]
     Active Substance: ZOLEDRONIC ACID
     Dosage: 4MG IN 50 ML NS IV OVER 15-20 MIN ONCE IN A MONTH FOR 3 MONTHS

REACTIONS (11)
  - Thrombosis [Unknown]
  - Mouth ulceration [Unknown]
  - Stomatitis [Unknown]
  - Cough [Unknown]
  - Pain [Unknown]
  - Back pain [Unknown]
  - Lip dry [Unknown]
  - Fatigue [Unknown]
  - Toothache [Unknown]
  - Neoplasm progression [Unknown]
  - Haemoptysis [Unknown]

NARRATIVE: CASE EVENT DATE: 20191201
